FAERS Safety Report 8288995-X (Version None)
Quarter: 2012Q2

REPORT INFORMATION
  Report Type: 
  Country: None (occurrence: None)
  Receive Date: 20120412
  Receipt Date: 20120402
  Transmission Date: 20120825
  Serious: Yes (Hospitalization, Other)
  Sender: FDA-Public Use
  Company Number: 2009AL003932

PATIENT
  Age: 36 Year
  Sex: Female

DRUGS (15)
  1. RAMIPRIL [Concomitant]
  2. CLOZARIL [Suspect]
     Indication: SCHIZOPHRENIA
     Dosage: 250 MG;QD;PO
     Route: 048
     Dates: start: 20050519
  3. LANSOPRAZOLE [Suspect]
     Dosage: 30 MG;QD;PO
     Route: 048
  4. FOLIC ACID [Suspect]
     Dosage: 5 MG;QD;PO
     Route: 048
  5. ARIPIPRAZOLE [Concomitant]
  6. FERROUS SULFATE TAB [Suspect]
     Dosage: 200 MG;BID;PO
     Route: 048
  7. TRIMETHOPRIM [Suspect]
     Indication: URINARY TRACT INFECTION
  8. FUROSEMIDE [Concomitant]
  9. ATORVASTATIN [Concomitant]
  10. ENULOSE [Suspect]
     Dosage: 10 ML
  11. PERINDOPRIL ERBUMINE [Suspect]
     Dosage: 2 MG;QD;PO
     Route: 048
  12. DIAZEPAM [Suspect]
  13. BENDROFLUMETHIAZIDE [Concomitant]
  14. CLOZARIL [Suspect]
     Indication: SCHIZOPHRENIA
     Dosage: 250 MG;QD;PO
     Route: 048
     Dates: start: 20060605, end: 20060713
  15. ZOPICLONE (ZOPICLONE) [Suspect]
     Dosage: 3.75 MG

REACTIONS (13)
  - ABDOMINAL PAIN UPPER [None]
  - CARDIAC MURMUR [None]
  - NEUTROPHILIA [None]
  - WHITE BLOOD CELL COUNT INCREASED [None]
  - TREATMENT NONCOMPLIANCE [None]
  - THROMBOCYTOSIS [None]
  - HAEMORRHAGE [None]
  - HIATUS HERNIA [None]
  - DIABETES MELLITUS [None]
  - MALAISE [None]
  - URINARY TRACT INFECTION [None]
  - SINUS TACHYCARDIA [None]
  - DRUG INEFFECTIVE [None]
